FAERS Safety Report 5067847-2 (Version None)
Quarter: 2006Q3

REPORT INFORMATION
  Report Type: 
  Country: None (occurrence: None)
  Receive Date: 20060714
  Receipt Date: 20060127
  Transmission Date: 20061208
  Serious: Yes (Other)
  Sender: FDA-Public Use
  Company Number: PHEH2005US11400

PATIENT
  Age: 12 Year
  Sex: Male
  Weight: 63.5 kg

DRUGS (2)
  1. TRILEPTAL [Suspect]
     Indication: CLONIC CONVULSION
     Dosage: 600 MG, BID, ORAL
     Route: 048
     Dates: start: 20050726
  2. TRILEPTAL [Suspect]
     Indication: CONVULSION
     Dosage: 600 MG, BID, ORAL
     Route: 048
     Dates: start: 20050726

REACTIONS (7)
  - ASTHMA [None]
  - DYSPEPSIA [None]
  - DYSPNOEA [None]
  - GASTROOESOPHAGEAL REFLUX DISEASE [None]
  - HEART RATE INCREASED [None]
  - THROAT IRRITATION [None]
  - TIC [None]
